FAERS Safety Report 15547862 (Version 2)
Quarter: 2018Q4

REPORT INFORMATION
  Report Type: Spontaneous
  Country: EE (occurrence: EE)
  Receive Date: 20181024
  Receipt Date: 20181120
  Transmission Date: 20190205
  Serious: Yes (Other)
  Sender: FDA-Public Use
  Company Number: EE-ALLERGAN-1850343US

PATIENT
  Age: 27 Year
  Sex: Female

DRUGS (7)
  1. DIAZEPAM. [Concomitant]
     Active Substance: DIAZEPAM
     Dosage: UNK
  2. VALDOXAN [Suspect]
     Active Substance: AGOMELATINE
     Dosage: 12.5 MG, QD
     Route: 065
     Dates: start: 2016
  3. OXAZEPAM. [Concomitant]
     Active Substance: OXAZEPAM
     Indication: DEPRESSION
     Dosage: UNK
     Dates: start: 2015
  4. VALDOXAN [Suspect]
     Active Substance: AGOMELATINE
     Dosage: 25 MG, QD
     Route: 065
     Dates: start: 2015
  5. ESCITALOPRAM OXALATE - BP [Suspect]
     Active Substance: ESCITALOPRAM OXALATE
     Indication: PRODUCT USED FOR UNKNOWN INDICATION
     Dosage: UNK
     Route: 065
     Dates: start: 2012
  6. EFFEXOR [Suspect]
     Active Substance: VENLAFAXINE HYDROCHLORIDE
     Indication: DEPRESSION
     Dosage: 37.5 MG, QD
     Route: 065
     Dates: start: 2015
  7. VALDOXAN [Suspect]
     Active Substance: AGOMELATINE
     Indication: DEPRESSION
     Dosage: UNK UNK, QD
     Route: 048
     Dates: start: 2017

REACTIONS (20)
  - Impaired quality of life [Not Recovered/Not Resolved]
  - Restlessness [Recovered/Resolved]
  - Fatigue [Not Recovered/Not Resolved]
  - Fear of death [Not Recovered/Not Resolved]
  - Adverse drug reaction [Recovered/Resolved]
  - Agoraphobia [Not Recovered/Not Resolved]
  - Nightmare [Not Recovered/Not Resolved]
  - Derealisation [Not Recovered/Not Resolved]
  - Vomiting [Recovered/Resolved]
  - Akathisia [Unknown]
  - Anger [Not Recovered/Not Resolved]
  - Autophobia [Not Recovered/Not Resolved]
  - Suicidal ideation [Unknown]
  - Panic disorder [Not Recovered/Not Resolved]
  - Cerebral disorder [Not Recovered/Not Resolved]
  - Visual impairment [Not Recovered/Not Resolved]
  - Anxiety [Recovered/Resolved]
  - Insomnia [Not Recovered/Not Resolved]
  - Weight decreased [Not Recovered/Not Resolved]
  - Palpitations [Not Recovered/Not Resolved]

NARRATIVE: CASE EVENT DATE: 2016
